FAERS Safety Report 20995493 (Version 1)
Quarter: 2022Q2

REPORT INFORMATION
  Report Type: Report from Study
  Country: US (occurrence: US)
  Receive Date: 20220622
  Receipt Date: 20220622
  Transmission Date: 20220720
  Serious: Yes (Other)
  Sender: FDA-Public Use
  Company Number: US-ABBVIE-22K-163-4441777-00

PATIENT
  Sex: Female

DRUGS (1)
  1. IMBRUVICA [Suspect]
     Active Substance: IBRUTINIB
     Indication: Waldenstrom^s macroglobulinaemia
     Route: 048

REACTIONS (8)
  - Neuronal neuropathy [Unknown]
  - Spinal fracture [Unknown]
  - Mobility decreased [Unknown]
  - Nephrolithiasis [Unknown]
  - Dysuria [Unknown]
  - Renal cyst [Unknown]
  - Fall [Unknown]
  - Diarrhoea [Unknown]
